FAERS Safety Report 7391379-X (Version None)
Quarter: 2011Q2

REPORT INFORMATION
  Report Type: 
  Country: None (occurrence: None)
  Receive Date: 20110404
  Receipt Date: 20110330
  Transmission Date: 20111010
  Serious: Yes (Hospitalization)
  Sender: FDA-Public Use
  Company Number: JP-SANOFI-AVENTIS-2011SA013767

PATIENT
  Age: 60 Year
  Sex: Female
  Weight: 59.1 kg

DRUGS (5)
  1. ASVERIN [Suspect]
     Route: 048
     Dates: start: 20110222, end: 20110226
  2. KLARICID [Suspect]
     Route: 048
     Dates: start: 20110222, end: 20110226
  3. MUCODYNE [Suspect]
     Route: 048
     Dates: start: 20110222, end: 20110226
  4. SELBEX [Suspect]
     Route: 048
     Dates: start: 20110222, end: 20110226
  5. ALLEGRA [Suspect]
     Route: 048
     Dates: start: 20110222, end: 20110301

REACTIONS (1)
  - TOXIC SKIN ERUPTION [None]
